FAERS Safety Report 6043118-2 (Version None)
Quarter: 2009Q1

REPORT INFORMATION
  Report Type: 
  Country: None (occurrence: None)
  Receive Date: 20090119
  Receipt Date: 20090108
  Transmission Date: 20090719
  Serious: Yes (Other)
  Sender: FDA-Public Use
  Company Number: DE-PFIZER INC-2009152900

PATIENT

DRUGS (3)
  1. INSPRA [Suspect]
     Indication: HYPERTENSION
     Dosage: 50 MG, 1X/DAY
     Route: 048
     Dates: start: 20030101
  2. MINOXIDIL [Concomitant]
     Indication: HYPERTENSION
     Dosage: UNK
  3. CARVEDILOL [Concomitant]
     Indication: HYPERTENSION
     Dosage: UNK

REACTIONS (2)
  - DYSPNOEA [None]
  - PANCREATITIS [None]
